FAERS Safety Report 8221657-3 (Version None)
Quarter: 2012Q1

REPORT INFORMATION
  Report Type: 
  Country: None (occurrence: None)
  Receive Date: 20120320
  Receipt Date: 20120314
  Transmission Date: 20120608
  Serious: Yes (Hospitalization, Other)
  Sender: FDA-Public Use
  Company Number: US-AMGEN-USASP2011057997

PATIENT
  Age: 72 Year
  Sex: Female

DRUGS (19)
  1. PROLIA [Suspect]
     Indication: OSTEOPOROSIS POSTMENOPAUSAL
     Dosage: 60 MG, Q6MO
     Route: 058
     Dates: start: 20110906, end: 20111104
  2. LIPITOR [Concomitant]
     Dosage: 10 MG, QD
     Route: 048
  3. SERTRALINE HYDROCHLORIDE [Concomitant]
     Indication: DEPRESSION
     Dosage: 50 MG, UNK
     Route: 048
  4. DILAUDID [Concomitant]
     Indication: BACK PAIN
     Dosage: 4 MG, UNK
     Route: 048
  5. VITAMIN D [Concomitant]
     Indication: OSTEOPOROSIS
     Dosage: 2000 IU, QD
     Route: 048
  6. OXYCONTIN [Concomitant]
     Indication: BACK PAIN
     Dosage: 20 MG, Q12H
     Dates: start: 20111104
  7. ALUMINIUN-MAGNESIUM HYDROXIDE W/SIMETHICONA [Concomitant]
     Dosage: 30 ML, Q4H
  8. MULTI-VITAMINS [Concomitant]
     Dosage: UNK UNK, QD
  9. OXYCONTIN [Concomitant]
     Indication: BREAKTHROUGH PAIN
     Dosage: 10 MG, PRN
     Route: 048
  10. MILK OF MAGNESIA TAB [Concomitant]
     Dosage: 30 ML, QD
     Route: 048
  11. TAB A VITE [Concomitant]
     Indication: HYPOVITAMINOSIS
     Dosage: 0.4 MG/DL, UNK
     Route: 048
  12. ISOPTO HOMATROPINE [Concomitant]
     Dosage: 1 GTT, BID
  13. PRILOSEC [Concomitant]
     Dosage: 20 MG, QD
     Route: 048
     Dates: start: 20110516
  14. TUMS                               /00193601/ [Concomitant]
     Indication: OSTEOPOROSIS
     Dosage: 500 MG, BID
     Route: 048
  15. EXTRA STRENGTH TYLENOL [Concomitant]
     Indication: PAIN
     Dosage: UNK UNK, PRN
  16. SENNA                              /00142201/ [Concomitant]
  17. CELEBREX [Concomitant]
     Dosage: 200 MG, UNK
     Route: 048
  18. MIRALAX                            /00754501/ [Concomitant]
     Route: 048
  19. GABAPENTIN [Concomitant]
     Dosage: 300 MG, BID
     Route: 048

REACTIONS (23)
  - PYREXIA [None]
  - PELVIC ABSCESS [None]
  - HAEMATOMA [None]
  - STREPTOCOCCAL BACTERAEMIA [None]
  - IMMOBILE [None]
  - NAUSEA [None]
  - LUNG ABSCESS [None]
  - WOUND ABSCESS [None]
  - LIVER ABSCESS [None]
  - HYPOALBUMINAEMIA [None]
  - PAIN IN EXTREMITY [None]
  - STREPTOCOCCAL SEPSIS [None]
  - SUBCUTANEOUS ABSCESS [None]
  - BACK PAIN [None]
  - ABDOMINAL PAIN UPPER [None]
  - LYMPHOEDEMA [None]
  - PATHOLOGICAL FRACTURE [None]
  - DECREASED APPETITE [None]
  - ENDOPHTHALMITIS [None]
  - NEUROPATHY PERIPHERAL [None]
  - GROIN PAIN [None]
  - MALNUTRITION [None]
  - FATIGUE [None]
